FAERS Safety Report 8796137 (Version 2)
Quarter: 2012Q4

REPORT INFORMATION
  Report Type: 
  Country: JP (occurrence: JP)
  Receive Date: 20120919
  Receipt Date: 20120927
  Transmission Date: 20130627
  Serious: Yes (Other)
  Sender: FDA-Public Use
  Company Number: JP-PFIZER INC-2012227431

PATIENT
  Age: 69 Year
  Sex: Female
  Weight: 43.2 kg

DRUGS (6)
  1. DALACIN [Suspect]
     Indication: STAPHYLOCOCCAL INFECTION
     Route: 042
  2. VANCOMYCIN HCL [Suspect]
     Indication: STAPHYLOCOCCAL INFECTION
     Route: 042
  3. CEFTRIAXONE SODIUM [Suspect]
     Route: 042
  4. LEVOFLOXACIN [Suspect]
  5. SULFAMETHOXAZOLE W/TRIMETHOPRIM [Suspect]
  6. MICAFUNGIN [Suspect]

REACTIONS (1)
  - Renal impairment [Unknown]
